FAERS Safety Report 13603032 (Version 1)
Quarter: 2017Q2

REPORT INFORMATION
  Report Type: Spontaneous
  Country: IT (occurrence: IT)
  Receive Date: 20170601
  Receipt Date: 20170601
  Transmission Date: 20170830
  Serious: Yes (Death, Hospitalization, Other)
  Sender: FDA-Public Use
  Company Number: IT-MYLANLABS-2017M1033122

PATIENT

DRUGS (6)
  1. CYTARABINE. [Suspect]
     Active Substance: CYTARABINE
     Indication: ACUTE MYELOID LEUKAEMIA
     Dosage: 100MG/MQ FOR 7 DAYS FOLLOWED BY 2MG/MQ/DAILY FOR FIVE DAYS
     Route: 065
  2. CLOFARABINE. [Suspect]
     Active Substance: CLOFARABINE
     Indication: ACUTE MYELOID LEUKAEMIA
     Dosage: 22.5 MG/MQ FOR 5 DAYS
     Route: 065
  3. DOXORUBICIN [Suspect]
     Active Substance: DOXORUBICIN
     Indication: ACUTE MYELOID LEUKAEMIA
     Dosage: 50MG/MQ FOR 3 DAYS
     Route: 065
  4. FLUDARABINE [Suspect]
     Active Substance: FLUDARABINE PHOSPHATE
     Indication: ACUTE MYELOID LEUKAEMIA
     Dosage: 30MG/MQ/DAILY FOR 5 DAYS
     Route: 065
  5. CYTARABINE. [Suspect]
     Active Substance: CYTARABINE
     Dosage: 2MG/MQ/DAILY FOR FIVE DAYS (RE-INDUCTION THERAPY
     Route: 065
  6. IDARUBICIN [Suspect]
     Active Substance: IDARUBICIN
     Indication: ACUTE MYELOID LEUKAEMIA
     Dosage: 10MG/MQ/DAILY FOR 3 DAYS

REACTIONS (3)
  - Febrile neutropenia [Fatal]
  - Fusarium infection [Fatal]
  - Acute respiratory failure [Fatal]
